FAERS Safety Report 21899961 (Version 1)
Quarter: 2023Q1

REPORT INFORMATION
  Report Type: Spontaneous
  Country: US (occurrence: US)
  Receive Date: 20230123
  Receipt Date: 20230123
  Transmission Date: 20230417
  Serious: No
  Sender: FDA-Public Use
  Company Number: US-NOVOPROD-1001757

PATIENT
  Sex: Female

DRUGS (1)
  1. OZEMPIC [Suspect]
     Active Substance: SEMAGLUTIDE
     Indication: Type 2 diabetes mellitus
     Dosage: 0.5 MG, QW
     Route: 058
     Dates: start: 2019, end: 2022

REACTIONS (6)
  - Muscle spasms [Not Recovered/Not Resolved]
  - Night sweats [Recovered/Resolved]
  - Headache [Not Recovered/Not Resolved]
  - Glycosylated haemoglobin increased [Unknown]
  - Injection site bruising [Recovered/Resolved]
  - Dizziness [Not Recovered/Not Resolved]

NARRATIVE: CASE EVENT DATE: 20190101
